FAERS Safety Report 8439963-6 (Version None)
Quarter: 2012Q2

REPORT INFORMATION
  Report Type: 
  Country: None (occurrence: None)
  Receive Date: 20120615
  Receipt Date: 20120606
  Transmission Date: 20120825
  Serious: Yes (Hospitalization)
  Sender: FDA-Public Use
  Company Number: CZ-ASTRAZENECA-2012SE38934

PATIENT
  Age: 24500 Day
  Sex: Male

DRUGS (11)
  1. ASPIRIN [Suspect]
     Route: 048
     Dates: end: 20120529
  2. LAGOSA [Concomitant]
     Indication: LIVER DISORDER
     Route: 048
  3. ATORVASTATIN CALCIUM [Concomitant]
     Indication: DYSLIPIDAEMIA
     Route: 048
  4. PRESTANCE 5/5 [Concomitant]
     Indication: HYPERTENSION
     Route: 048
  5. BETALOC SR [Concomitant]
     Indication: MYOCARDIAL ISCHAEMIA
     Route: 048
  6. AZD6140 [Suspect]
     Indication: CORONARY ARTERY DISEASE
     Route: 048
     Dates: start: 20111219, end: 20120117
  7. AZD6140 [Suspect]
     Route: 048
     Dates: start: 20120131, end: 20120528
  8. PREDUCTAL MR [Concomitant]
     Indication: MYOCARDIAL ISCHAEMIA
     Route: 048
  9. OMNIC TOPAS [Concomitant]
     Indication: BENIGN PROSTATIC HYPERPLASIA
     Route: 048
  10. ESSENTIALE FORTE [Concomitant]
     Indication: LIVER DISORDER
     Route: 048
  11. CLOPIDOGREL [Concomitant]
     Indication: ANTIPLATELET THERAPY
     Dates: start: 20111110

REACTIONS (1)
  - DUODENAL ULCER [None]
